FAERS Safety Report 13383507 (Version 2)
Quarter: 2017Q3

REPORT INFORMATION
  Report Type: Spontaneous
  Country: GB (occurrence: GB)
  Receive Date: 20170329
  Receipt Date: 20170707
  Transmission Date: 20171127
  Serious: Yes (Death)
  Sender: FDA-Public Use
  Company Number: GB-TEVA-752653ACC

PATIENT
  Age: 78 Year
  Sex: Female
  Weight: 33.3 kg

DRUGS (20)
  1. SENNA [Concomitant]
     Active Substance: SENNA LEAF\SENNOSIDES\SENNOSIDES A AND B
     Indication: LAXATIVE SUPPORTIVE CARE
     Dosage: UP TO TWICE A DAY
  2. TRAMADOL HYDROCHLORIDE. [Suspect]
     Active Substance: TRAMADOL HYDROCHLORIDE
     Indication: ARTHRALGIA
     Route: 048
     Dates: start: 20150919, end: 20150919
  3. PIROXICAM. [Concomitant]
     Active Substance: PIROXICAM
     Indication: ANALGESIC THERAPY
     Dosage: 20 MILLIGRAM DAILY;
  4. ADCAL-D3 [Concomitant]
     Active Substance: CALCIUM CARBONATE\CHOLECALCIFEROL
     Indication: OSTEOPOROSIS PROPHYLAXIS
     Dosage: 2 DOSAGE FORMS DAILY;
  5. AMITRIPTYLINE HYDROCHLORIDE. [Concomitant]
     Active Substance: AMITRIPTYLINE HYDROCHLORIDE
     Indication: DEPRESSION
     Dosage: 20 MILLIGRAM DAILY;
     Dates: start: 20150801
  6. PARACETAMOL [Concomitant]
     Active Substance: ACETAMINOPHEN
     Indication: ANALGESIC THERAPY
     Dosage: 1 OR 2 UP TO FOUR TIMES A DAY
  7. TRAMADOL HYDROCHLORIDE. [Suspect]
     Active Substance: TRAMADOL HYDROCHLORIDE
     Indication: ARTHRALGIA
     Dosage: 400 MILLIGRAM DAILY;
     Route: 048
     Dates: start: 20150925, end: 20150925
  8. MIRTAZAPIN [Concomitant]
     Active Substance: MIRTAZAPINE
     Indication: DEPRESSION
     Dosage: 15 MILLIGRAM DAILY;
  9. TRAMADOL HYDROCHLORIDE. [Suspect]
     Active Substance: TRAMADOL HYDROCHLORIDE
     Indication: ARTHRALGIA
     Route: 048
     Dates: start: 20150920, end: 20150922
  10. TRAMADOL HYDROCHLORIDE. [Suspect]
     Active Substance: TRAMADOL HYDROCHLORIDE
     Indication: ARTHRALGIA
     Route: 048
     Dates: start: 20150918, end: 20150918
  11. TRAMADOL HYDROCHLORIDE. [Suspect]
     Active Substance: TRAMADOL HYDROCHLORIDE
     Indication: ARTHRALGIA
     Dosage: 400 MILLIGRAM DAILY;
     Route: 048
     Dates: start: 20150924, end: 20150924
  12. RISEDRONATE [Concomitant]
     Active Substance: RISEDRONATE SODIUM
     Indication: OSTEOPOROSIS
  13. TRAMADOL HYDROCHLORIDE. [Suspect]
     Active Substance: TRAMADOL HYDROCHLORIDE
     Indication: ARTHRALGIA
     Route: 048
     Dates: start: 20150917, end: 20150917
  14. PREDNISOLONE. [Concomitant]
     Active Substance: PREDNISOLONE
     Indication: STEROID THERAPY
     Dosage: 4 MILLIGRAM DAILY;
  15. TRAMADOL HYDROCHLORIDE. [Suspect]
     Active Substance: TRAMADOL HYDROCHLORIDE
     Indication: ARTHRALGIA
     Route: 048
     Dates: start: 20150916, end: 20150916
  16. FERROUS FUMARATE [Concomitant]
     Active Substance: FERROUS FUMARATE
     Dosage: 3 DOSAGE FORMS DAILY;
  17. ACIDEX [Concomitant]
     Active Substance: CALCIUM CARBONATE\SODIUM ALGINATE\SODIUM BICARBONATE
  18. RANITIDINE HYDROCHLORIDE. [Concomitant]
     Active Substance: RANITIDINE HYDROCHLORIDE
     Indication: GASTRITIS PROPHYLAXIS
     Dosage: 300 MILLIGRAM DAILY;
  19. TRAMADOL HYDROCHLORIDE. [Suspect]
     Active Substance: TRAMADOL HYDROCHLORIDE
     Indication: ARTHRALGIA
     Route: 048
     Dates: start: 20150923, end: 20150923
  20. AMITRIPTYLINE HYDROCHLORIDE. [Concomitant]
     Active Substance: AMITRIPTYLINE HYDROCHLORIDE
     Indication: DEPRESSION
     Dosage: 10 MILLIGRAM DAILY;
     Dates: end: 20150801

REACTIONS (1)
  - Ventricular arrhythmia [Fatal]

NARRATIVE: CASE EVENT DATE: 20150925
